FAERS Safety Report 18290634 (Version 1)
Quarter: 2020Q3

REPORT INFORMATION
  Report Type: Spontaneous
  Country: JP (occurrence: JP)
  Receive Date: 20200921
  Receipt Date: 20200921
  Transmission Date: 20201103
  Serious: Yes (Hospitalization, Other)
  Sender: FDA-Public Use
  Company Number: JP-EXELIXIS-CABO-20033031

PATIENT
  Sex: Male

DRUGS (1)
  1. CABOMETYX [Suspect]
     Active Substance: CABOZANTINIB S-MALATE
     Indication: RENAL CANCER
     Dosage: 20 MG
     Route: 048
     Dates: start: 20200728, end: 20200908

REACTIONS (3)
  - Renal failure [Unknown]
  - Hypoaesthesia [Unknown]
  - Malaise [Unknown]

NARRATIVE: CASE EVENT DATE: 20200908
